FAERS Safety Report 17030884 (Version 6)
Quarter: 2020Q2

REPORT INFORMATION
  Report Type: Spontaneous
  Country: DE (occurrence: DE)
  Receive Date: 20191114
  Receipt Date: 20200625
  Transmission Date: 20200713
  Serious: Yes (Hospitalization, Other)
  Sender: FDA-Public Use
  Company Number: DE-CELGENEUS-DEU-20191103424

PATIENT
  Age: 59 Year
  Sex: Male
  Weight: 70 kg

DRUGS (9)
  1. POMALIDOMIDE [Suspect]
     Active Substance: POMALIDOMIDE
     Indication: PLASMA CELL MYELOMA
     Route: 048
     Dates: start: 20141001, end: 20180615
  2. MIRTAZAPINE. [Concomitant]
     Active Substance: MIRTAZAPINE
     Indication: PRODUCT USED FOR UNKNOWN INDICATION
     Route: 065
  3. CARFILZOMIB [Concomitant]
     Active Substance: CARFILZOMIB
     Indication: PLASMA CELL MYELOMA
     Route: 042
  4. DARATUMUMAB [Suspect]
     Active Substance: DARATUMUMAB
     Indication: PLASMA CELL MYELOMA
     Route: 065
     Dates: start: 20170701, end: 20190525
  5. BORTEZOMIB. [Suspect]
     Active Substance: BORTEZOMIB
     Indication: PLASMA CELL MYELOMA
     Route: 065
     Dates: start: 20130204, end: 20190308
  6. ELOTUZUMAB. [Concomitant]
     Active Substance: ELOTUZUMAB
     Indication: PLASMA CELL MYELOMA
     Dosage: 10 MILLIGRAM/KILOGRAM
     Route: 065
     Dates: start: 20190131, end: 20190521
  7. CYCLOPHOSPHAMIDE. [Concomitant]
     Active Substance: CYCLOPHOSPHAMIDE
     Indication: PLASMA CELL MYELOMA
     Route: 065
     Dates: start: 20130204, end: 20180601
  8. DEXAMETHASONE. [Concomitant]
     Active Substance: DEXAMETHASONE
     Indication: PLASMA CELL MYELOMA
     Route: 065
     Dates: start: 20080801, end: 20190528
  9. CIDOFOVIR. [Concomitant]
     Active Substance: CIDOFOVIR
     Indication: PLASMA CELL MYELOMA
     Route: 065

REACTIONS (11)
  - Progressive multifocal leukoencephalopathy [Recovered/Resolved with Sequelae]
  - Anogenital warts [Unknown]
  - JC virus infection [Recovered/Resolved with Sequelae]
  - Respirovirus test positive [Unknown]
  - Immune reconstitution inflammatory syndrome [Unknown]
  - Metastasis [Unknown]
  - Cytomegalovirus infection reactivation [Unknown]
  - Blindness [Unknown]
  - Papilloma viral infection [Unknown]
  - Hypoacusis [Unknown]
  - Blindness cortical [Unknown]
